FAERS Safety Report 16044334 (Version 1)
Quarter: 2019Q1

REPORT INFORMATION
  Report Type: Spontaneous
  Country: US (occurrence: US)
  Receive Date: 20190306
  Receipt Date: 20190306
  Transmission Date: 20190418
  Serious: Yes (Other)
  Sender: FDA-Public Use
  Company Number: US-VIFOR (INTERNATIONAL) INC.-VIT-2019-01953

PATIENT
  Sex: Male

DRUGS (7)
  1. ZEMPLAR [Concomitant]
     Active Substance: PARICALCITOL
  2. NOVOLIN R [Concomitant]
     Active Substance: INSULIN HUMAN
  3. VELTASSA [Suspect]
     Active Substance: PATIROMER
     Route: 048
  4. ARANESP [Concomitant]
     Active Substance: DARBEPOETIN ALFA
  5. LEVEMIR [Concomitant]
     Active Substance: INSULIN DETEMIR
  6. LEVOTHYROXINE SODIUM. [Concomitant]
     Active Substance: LEVOTHYROXINE SODIUM
  7. VELTASSA [Suspect]
     Active Substance: PATIROMER
     Indication: HYPERKALAEMIA
     Route: 048
     Dates: start: 20180626

REACTIONS (3)
  - Diabetes mellitus [Not Recovered/Not Resolved]
  - Off label use [Unknown]
  - Diarrhoea [Recovered/Resolved]
